FAERS Safety Report 5654323-9 (Version None)
Quarter: 2008Q1

REPORT INFORMATION
  Report Type: 
  Country: None (occurrence: None)
  Receive Date: 20080306
  Receipt Date: 20080225
  Transmission Date: 20080703
  Serious: Yes (Hospitalization, Other)
  Sender: FDA-Public Use
  Company Number: US-MERCK-0707USA05064

PATIENT
  Age: 60 Year
  Sex: Female
  Weight: 73 kg

DRUGS (3)
  1. FOSAMAX [Suspect]
     Indication: OSTEOPOROSIS
     Route: 048
     Dates: start: 20031205, end: 20060727
  2. FLONASE [Concomitant]
     Indication: HYPERSENSITIVITY
     Route: 065
     Dates: start: 20041111
  3. SYNTHROID [Concomitant]
     Indication: THYROID DISORDER
     Route: 065

REACTIONS (19)
  - ACUTE SINUSITIS [None]
  - ANXIETY [None]
  - BRONCHITIS [None]
  - CAROTID ARTERY STENOSIS [None]
  - CHEST PAIN [None]
  - COUGH [None]
  - DEPRESSION [None]
  - DYSPNOEA [None]
  - EYE DISORDER [None]
  - GASTRITIS [None]
  - HIATUS HERNIA [None]
  - HYPOAESTHESIA FACIAL [None]
  - OSTEONECROSIS [None]
  - PHARYNGOLARYNGEAL PAIN [None]
  - RHINITIS ALLERGIC [None]
  - SINUSITIS [None]
  - SLEEP DISORDER [None]
  - STRESS [None]
  - VOCAL CORD PARALYSIS [None]
